FAERS Safety Report 17279205 (Version 2)
Quarter: 2020Q1

REPORT INFORMATION
  Report Type: Spontaneous
  Country: US (occurrence: US)
  Receive Date: 20200116
  Receipt Date: 20200221
  Transmission Date: 20200409
  Serious: Yes (Hospitalization, Other)
  Sender: FDA-Public Use
  Company Number: US-SA-2020SA011093

PATIENT
  Age: 85 Year
  Sex: Female

DRUGS (2)
  1. LANTUS SOLOSTAR [Suspect]
     Active Substance: INSULIN GLARGINE
     Indication: TYPE 1 DIABETES MELLITUS
     Dosage: 14 IU, QD
     Route: 065
  2. HUMALOG [Concomitant]
     Active Substance: INSULIN LISPRO
     Dosage: UNK UNK, TID
     Route: 065

REACTIONS (12)
  - Cerebrovascular accident [Unknown]
  - Glaucoma [Unknown]
  - Eating disorder [Recovered/Resolved]
  - Product storage error [Unknown]
  - Influenza [Unknown]
  - Myopathy [Unknown]
  - Blood glucose decreased [Unknown]
  - Drug ineffective [Unknown]
  - Abnormal behaviour [Unknown]
  - Expired product administered [Unknown]
  - Rib fracture [Unknown]
  - Memory impairment [Recovered/Resolved]

NARRATIVE: CASE EVENT DATE: 2018
